FAERS Safety Report 9410302 (Version 2)
Quarter: 2013Q3

REPORT INFORMATION
  Report Type: Spontaneous
  Country: US (occurrence: US)
  Receive Date: 20130719
  Receipt Date: 20130807
  Transmission Date: 20140515
  Serious: No
  Sender: FDA-Public Use
  Company Number: US-PFIZER INC-2013212329

PATIENT
  Age: 75 Year
  Sex: Male

DRUGS (4)
  1. LYRICA [Suspect]
     Indication: DIABETIC NEUROPATHY
     Dosage: 50MG IN THE MORNING (AM), 75MG IN THE AFTERNOON (PM)
     Route: 048
     Dates: start: 2011, end: 201306
  2. TRADJENTA [Concomitant]
     Dosage: 5 MG, 1X/DAY (QD)
  3. BYSTOLIC [Concomitant]
     Dosage: 10 MG, 1X/DAY (QD)
  4. CELEBREX [Concomitant]
     Dosage: 200 MG, 1X/DAY (QD)

REACTIONS (1)
  - Dry mouth [Recovered/Resolved]
